FAERS Safety Report 15741926 (Version 2)
Quarter: 2019Q1

REPORT INFORMATION
  Report Type: Spontaneous
  Country: DE (occurrence: DE)
  Receive Date: 20181219
  Receipt Date: 20190122
  Transmission Date: 20190417
  Serious: Yes (Other)
  Sender: FDA-Public Use
  Company Number: DE-ALLERGAN-1857845US

PATIENT
  Age: 52 Year

DRUGS (5)
  1. OFLOXACIN UNK [Suspect]
     Active Substance: OFLOXACIN
     Indication: POSTOPERATIVE CARE
     Dosage: UNK UNK, QID
     Route: 047
  2. HUMAN ALBUMIN [Concomitant]
     Active Substance: ALBUMIN HUMAN
     Indication: POSTOPERATIVE CARE
  3. CICLOSPORIN A [Concomitant]
     Active Substance: CYCLOSPORINE
     Indication: POSTOPERATIVE CARE
     Dosage: UNK UNK, BID
     Route: 047
  4. MYCOPHENOLATE MOFETIL. [Concomitant]
     Active Substance: MYCOPHENOLATE MOFETIL
     Indication: IMMUNOSUPPRESSION
     Dosage: 2 G, QD
  5. DEXAMETHASONE SODIUM PHOSPHATE. [Concomitant]
     Active Substance: DEXAMETHASONE SODIUM PHOSPHATE
     Indication: POSTOPERATIVE CARE
     Dosage: SIX TIMES A DAY
     Route: 047

REACTIONS (3)
  - Impaired healing [Unknown]
  - Corneal perforation [Unknown]
  - Keratolysis exfoliativa acquired [Unknown]
